FAERS Safety Report 9382471 (Version 1)
Quarter: 2013Q3

REPORT INFORMATION
  Report Type: Spontaneous
  Country: US (occurrence: US)
  Receive Date: 20130703
  Receipt Date: 20130703
  Transmission Date: 20140515
  Serious: No
  Sender: FDA-Public Use
  Company Number: US-UPSHER-SMITH LABORATORIES, INC.-12003558

PATIENT
  Age: 45 Year
  Sex: Female

DRUGS (2)
  1. DIVIGEL [Suspect]
     Indication: HYSTERECTOMY
     Dosage: 1.0 MG, QD
     Route: 061
     Dates: start: 201205, end: 201210
  2. UNSPECIFIED ANTI-INFLAMMATORY MEDICATIONS [Concomitant]
     Dosage: UNK

REACTIONS (2)
  - Drug ineffective [Unknown]
  - Product quality issue [Recovered/Resolved]
